FAERS Safety Report 15266283 (Version 1)
Quarter: 2018Q3

REPORT INFORMATION
  Report Type: Spontaneous
  Country: US (occurrence: US)
  Receive Date: 20180810
  Receipt Date: 20180810
  Transmission Date: 20181010
  Serious: Yes (Death, Other)
  Sender: FDA-Public Use
  Company Number: US-SAOL THERAPEUTICS-2018SAO00906

PATIENT
  Age: 26 Year
  Sex: Male
  Weight: 57.9 kg

DRUGS (4)
  1. LIORESAL [Suspect]
     Active Substance: BACLOFEN
     Indication: MUSCLE SPASTICITY
     Dosage: 100 ?G, \DAY
     Route: 037
     Dates: end: 20180719
  2. LIORESAL [Suspect]
     Active Substance: BACLOFEN
     Dosage: UNK, MINIMUM RATE
     Route: 037
     Dates: start: 20180719
  3. BACLOFEN. [Concomitant]
     Active Substance: BACLOFEN
     Route: 048
  4. PERCOCET [Concomitant]
     Active Substance: ACETAMINOPHEN\OXYCODONE HYDROCHLORIDE
     Indication: PAIN

REACTIONS (8)
  - Loss of consciousness [Not Recovered/Not Resolved]
  - Meningitis bacterial [Fatal]
  - Respiratory failure [Not Recovered/Not Resolved]
  - Escherichia infection [Unknown]
  - Brain oedema [Not Recovered/Not Resolved]
  - Complication associated with device [Unknown]
  - Brain herniation [Fatal]
  - CSF culture positive [Unknown]

NARRATIVE: CASE EVENT DATE: 20180710
